FAERS Safety Report 9502654 (Version 3)
Quarter: 2013Q3

REPORT INFORMATION
  Report Type: Spontaneous
  Country: GB (occurrence: GB)
  Receive Date: 20130906
  Receipt Date: 20130924
  Transmission Date: 20140515
  Serious: Yes (Hospitalization, Other)
  Sender: FDA-Public Use
  Company Number: GB-ACCORD-019077

PATIENT
  Age: 57 Year
  Sex: Female

DRUGS (8)
  1. ACICLOVIR [Concomitant]
     Indication: CHEMOTHERAPY
  2. CO-TRIMOXAZOLE [Concomitant]
     Indication: CHEMOTHERAPY
     Dosage: 960 MG, UNK
  3. ALLOPURINOL [Suspect]
     Indication: PRODUCT USED FOR UNKNOWN INDICATION
     Dosage: 300 MG, UNK
     Route: 065
     Dates: end: 20130807
  4. VELCADE [Suspect]
     Indication: PLASMA CELL LEUKAEMIA
     Dosage: 1.6 UNK, UNK
     Route: 065
     Dates: start: 20130712, end: 20130802
  5. CYCLOPHOSPHAMIDE [Concomitant]
     Indication: PLASMA CELL MYELOMA
     Dosage: 500 MG, UNK
  6. DEXAMETHASONE [Concomitant]
     Indication: PLASMA CELL MYELOMA
     Dosage: 20 MG, UNK
  7. AMITRIPTYLINE [Concomitant]
     Indication: DEPRESSION
  8. OMEPRAZOLE [Concomitant]
     Indication: CHEMOTHERAPY
     Dosage: 20 MG, UNK

REACTIONS (3)
  - Hepatic function abnormal [Unknown]
  - Skin reaction [Recovering/Resolving]
  - Pyrexia [Unknown]
